FAERS Safety Report 9344265 (Version 1)
Quarter: 2013Q2

REPORT INFORMATION
  Report Type: Spontaneous
  Country: US (occurrence: US)
  Receive Date: 20130612
  Receipt Date: 20130612
  Transmission Date: 20140414
  Serious: Yes (Other)
  Sender: FDA-Public Use
  Company Number: US-ROXANE LABORATORIES, INC.-2013-RO-00919RO

PATIENT
  Age: 36 Year
  Sex: Male

DRUGS (3)
  1. AZATHIOPRINE [Suspect]
     Indication: CROHN^S DISEASE
     Route: 048
  2. INFLIXIMAB [Suspect]
     Indication: CROHN^S DISEASE
  3. MESALAMINE [Concomitant]
     Indication: CROHN^S DISEASE
     Route: 061

REACTIONS (1)
  - Epstein-Barr virus associated lymphoma [Recovered/Resolved]
